FAERS Safety Report 5704738-5 (Version None)
Quarter: 2008Q2

REPORT INFORMATION
  Report Type: 
  Country: None (occurrence: None)
  Receive Date: 20080414
  Receipt Date: 20080402
  Transmission Date: 20081010
  Serious: Yes (Hospitalization)
  Sender: FDA-Public Use
  Company Number: GB-PFIZER INC-2008029698

PATIENT
  Age: 29 Year
  Sex: Female

DRUGS (1)
  1. LUSTRAL [Suspect]

REACTIONS (4)
  - COMA [None]
  - DEPRESSED LEVEL OF CONSCIOUSNESS [None]
  - MUSCLE TWITCHING [None]
  - UNRESPONSIVE TO STIMULI [None]
